FAERS Safety Report 8006721-6 (Version None)
Quarter: 2011Q4

REPORT INFORMATION
  Report Type: 
  Country: None (occurrence: None)
  Receive Date: 20111227
  Receipt Date: 20111216
  Transmission Date: 20120403
  Serious: Yes (Other)
  Sender: FDA-Public Use
  Company Number: CA-JNJFOC-20111207948

PATIENT
  Sex: Female
  Weight: 105 kg

DRUGS (5)
  1. ADVAIR DISKUS 100/50 [Concomitant]
     Route: 065
  2. VENTOLIN [Concomitant]
     Route: 065
  3. METFORMIN HCL [Concomitant]
     Route: 065
  4. NEXIUM [Concomitant]
     Route: 065
  5. REMICADE [Suspect]
     Indication: CROHN'S DISEASE
     Route: 042
     Dates: start: 20070423

REACTIONS (2)
  - PETECHIAE [None]
  - ERYTHEMA NODOSUM [None]
